FAERS Safety Report 9983544 (Version 1)
Quarter: 2014Q1

REPORT INFORMATION
  Report Type: Report from Study
  Country: US (occurrence: US)
  Receive Date: 20140307
  Receipt Date: 20140307
  Transmission Date: 20141002
  Serious: Yes (Hospitalization)
  Sender: FDA-Public Use
  Company Number: US-ABBVIE-14P-163-1207117-00

PATIENT
  Age: 63 Year
  Sex: Female
  Weight: 65.38 kg

DRUGS (7)
  1. HUMIRA [Suspect]
     Indication: RHEUMATOID ARTHRITIS
     Dates: start: 20110721, end: 20140224
  2. PREDNISONE [Concomitant]
     Indication: PRODUCT USED FOR UNKNOWN INDICATION
  3. URSODIOL [Concomitant]
     Indication: PRODUCT USED FOR UNKNOWN INDICATION
  4. HYDROCHLOROTH [Concomitant]
     Indication: PRODUCT USED FOR UNKNOWN INDICATION
  5. METOPROLOL [Concomitant]
     Indication: PRODUCT USED FOR UNKNOWN INDICATION
  6. LEVOTHYROXINE [Concomitant]
     Indication: HYPOTHYROIDISM
  7. ZOLPIDEM [Concomitant]
     Indication: PRODUCT USED FOR UNKNOWN INDICATION

REACTIONS (7)
  - Adenocarcinoma of colon [Not Recovered/Not Resolved]
  - Fatigue [Not Recovered/Not Resolved]
  - Blood potassium decreased [Unknown]
  - Rectal haemorrhage [Not Recovered/Not Resolved]
  - Rectal haemorrhage [Recovered/Resolved]
  - Herpes zoster [Recovered/Resolved]
  - Proctalgia [Recovered/Resolved]
